FAERS Safety Report 4985198-9 (Version None)
Quarter: 2006Q2

REPORT INFORMATION
  Report Type: 
  Country: None (occurrence: None)
  Receive Date: 20060427
  Receipt Date: 20060106
  Transmission Date: 20061013
  Serious: Yes (Disabling, Other)
  Sender: FDA-Public Use
  Company Number: US-MERCK-0601USA00956

PATIENT
  Age: 64 Year
  Sex: Female

DRUGS (1)
  1. VIOXX [Suspect]
     Indication: ARTHRALGIA
     Route: 048
     Dates: start: 20030122, end: 20040817

REACTIONS (3)
  - ACUTE MYOCARDIAL INFARCTION [None]
  - ANXIETY [None]
  - PAIN [None]
